FAERS Safety Report 18396125 (Version 1)
Quarter: 2020Q4

REPORT INFORMATION
  Report Type: Spontaneous
  Country: US (occurrence: US)
  Receive Date: 20201019
  Receipt Date: 20201019
  Transmission Date: 20210114
  Serious: Yes (Hospitalization, Other)
  Sender: FDA-Public Use
  Company Number: US-SUN PHARMACEUTICAL INDUSTRIES LTD-2019R1-219911

PATIENT
  Age: 2 Week
  Sex: Male

DRUGS (1)
  1. BUPRENORPHINE. [Suspect]
     Active Substance: BUPRENORPHINE
     Indication: DRUG USE DISORDER
     Dosage: UNK
     Route: 063

REACTIONS (9)
  - Lethargy [Recovering/Resolving]
  - Somnolence [Unknown]
  - Drug withdrawal syndrome neonatal [Unknown]
  - Poor feeding infant [Unknown]
  - Miosis [Recovering/Resolving]
  - Hypoglycaemia [Unknown]
  - Toxicity to various agents [Unknown]
  - Exposure via breast milk [Unknown]
  - Bradycardia [Recovering/Resolving]
